FAERS Safety Report 8325048 (Version 3)
Quarter: 2014Q1

REPORT INFORMATION
  Report Type: Spontaneous
  Country: US (occurrence: US)
  Receive Date: 20120106
  Receipt Date: 20140117
  Transmission Date: 20141002
  Serious: Yes (Other)
  Sender: FDA-Public Use
  Company Number: US-BAYER-2012-000036

PATIENT
  Age: 31 Year
  Sex: Female
  Weight: 99.77 kg

DRUGS (5)
  1. OCELLA [Suspect]
     Indication: CONTRACEPTION
     Dosage: UNK
     Dates: start: 2008, end: 2009
  2. OMEPRAZOLE [Concomitant]
  3. CLONIDINE [Concomitant]
  4. LISINOPRIL [Concomitant]
  5. METOCLOPRAMIDE [Concomitant]

REACTIONS (3)
  - Cholecystitis [None]
  - Gallbladder disorder [None]
  - Vomiting [None]
